FAERS Safety Report 7782640-5 (Version None)
Quarter: 2011Q3

REPORT INFORMATION
  Report Type: 
  Country: None (occurrence: None)
  Receive Date: 20110926
  Receipt Date: 20110926
  Transmission Date: 20111222
  Serious: Yes (Hospitalization)
  Sender: FDA-Public Use
  Company Number: None

PATIENT
  Sex: Female
  Weight: 53.4 kg

DRUGS (2)
  1. CARBOPLATIN [Suspect]
     Dosage: 470 MG
     Dates: end: 20110907
  2. TAXOL [Suspect]
     Dosage: 240 MG
     Dates: end: 20110914

REACTIONS (5)
  - ABDOMINAL PAIN LOWER [None]
  - INCISION SITE PAIN [None]
  - PYREXIA [None]
  - SWELLING [None]
  - ERYTHEMA [None]
